FAERS Safety Report 7755277-1 (Version None)
Quarter: 2011Q3

REPORT INFORMATION
  Report Type: 
  Country: None (occurrence: None)
  Receive Date: 20110916
  Receipt Date: 20110912
  Transmission Date: 20111222
  Serious: Yes (Hospitalization, Other)
  Sender: FDA-Public Use
  Company Number: FR-PFIZER INC-2011213441

PATIENT
  Age: 28 Year
  Sex: Female

DRUGS (4)
  1. ALPRAZOLAM [Suspect]
     Dosage: UNK
     Route: 048
     Dates: start: 20100816, end: 20100816
  2. STRESAM [Suspect]
     Dosage: UNK
     Route: 048
     Dates: start: 20100816, end: 20100816
  3. ACETAMINOPHEN [Suspect]
     Dosage: UNK
     Route: 048
     Dates: start: 20100816, end: 20100816
  4. EFFEXOR XR [Suspect]
     Dosage: UNK
     Route: 048
     Dates: start: 20100816, end: 20100816

REACTIONS (4)
  - INTENTIONAL OVERDOSE [None]
  - MYDRIASIS [None]
  - BRADYPHRENIA [None]
  - SOMNOLENCE [None]
